FAERS Safety Report 19881704 (Version 1)
Quarter: 2021Q3

REPORT INFORMATION
  Report Type: Spontaneous
  Country: US (occurrence: US)
  Receive Date: 20210925
  Receipt Date: 20210925
  Transmission Date: 20211014
  Serious: Yes (Other)
  Sender: FDA-Public Use
  Company Number: NVSC2021US216516

PATIENT
  Sex: Female

DRUGS (1)
  1. PROMACTA [Suspect]
     Active Substance: ELTROMBOPAG OLAMINE
     Indication: AMEGAKARYOCYTIC THROMBOCYTOPENIA
     Dosage: 50 MG, QD
     Route: 048

REACTIONS (1)
  - Thrombosis [Recovered/Resolved]
